FAERS Safety Report 11228802 (Version 1)
Quarter: 2015Q2

REPORT INFORMATION
  Report Type: Spontaneous
  Country: US (occurrence: US)
  Receive Date: 20150630
  Receipt Date: 20150630
  Transmission Date: 20150821
  Serious: No
  Sender: FDA-Public Use
  Company Number: US-PURDUE-USA-2014-0115313

PATIENT
  Age: 70 Year
  Sex: Female

DRUGS (2)
  1. DRONABINOL CAPSULES [Suspect]
     Active Substance: DRONABINOL
     Dosage: 5 MG, UNK
     Route: 048
  2. DRONABINOL CAPSULES [Suspect]
     Active Substance: DRONABINOL
     Indication: OESOPHAGEAL CARCINOMA
     Dosage: 10 MG, HS
     Route: 048
     Dates: start: 20140530

REACTIONS (3)
  - Feeling abnormal [Recovered/Resolved]
  - Dizziness [Recovered/Resolved]
  - Activities of daily living impaired [Recovered/Resolved]

NARRATIVE: CASE EVENT DATE: 20140530
